FAERS Safety Report 7249175-X (Version None)
Quarter: 2011Q1

REPORT INFORMATION
  Report Type: 
  Country: None (occurrence: None)
  Receive Date: 20110128
  Receipt Date: 20110120
  Transmission Date: 20110831
  Serious: Yes (Other)
  Sender: FDA-Public Use
  Company Number: US-US-EMD SERONO, INC.-7036101

PATIENT
  Sex: Male
  Weight: 79 kg

DRUGS (3)
  1. NIACIN [Concomitant]
     Indication: BLOOD CHOLESTEROL INCREASED
     Route: 048
  2. REBIF [Suspect]
     Route: 058
     Dates: start: 20100715
  3. REBIF [Suspect]
     Indication: MULTIPLE SCLEROSIS
     Route: 058
     Dates: start: 20070726, end: 20100124

REACTIONS (1)
  - OPTIC NEURITIS [None]
